FAERS Safety Report 19880340 (Version 1)
Quarter: 2021Q3

REPORT INFORMATION
  Report Type: Spontaneous
  Country: IN (occurrence: IN)
  Receive Date: 20210925
  Receipt Date: 20210925
  Transmission Date: 20211014
  Serious: Yes (Life-Threatening, Hospitalization, Other)
  Sender: FDA-Public Use
  Company Number: IN-ABBVIE-21K-078-4090546-00

PATIENT
  Age: 60 Year
  Sex: Female

DRUGS (10)
  1. RISPERIDONE. [Interacting]
     Active Substance: RISPERIDONE
     Indication: SCHIZOPHRENIA
     Dosage: APPROX 11 MONTHS IN 2002?2003 AND ANOTHER OF 10 MONTHS UNKNOWN
     Route: 065
     Dates: start: 2002, end: 2003
  2. OLANZAPINE. [Concomitant]
     Active Substance: OLANZAPINE
     Indication: PRODUCT USED FOR UNKNOWN INDICATION
  3. CLOBAZAM. [Suspect]
     Active Substance: CLOBAZAM
     Indication: TONIC CONVULSION
     Route: 065
     Dates: start: 2002
  4. DONEPEZIL HYDROCHLORIDE. [Suspect]
     Active Substance: DONEPEZIL HYDROCHLORIDE
     Indication: PRODUCT USED FOR UNKNOWN INDICATION
     Route: 065
     Dates: start: 2002, end: 2016
  5. OLMESARTAN [Suspect]
     Active Substance: OLMESARTAN
     Indication: PRODUCT USED FOR UNKNOWN INDICATION
     Route: 065
     Dates: start: 2000
  6. RISPERIDONE. [Interacting]
     Active Substance: RISPERIDONE
     Route: 065
     Dates: start: 2003, end: 2016
  7. VALPROATE SODIUM. [Suspect]
     Active Substance: VALPROATE SODIUM
     Indication: SEIZURE
     Route: 065
     Dates: start: 2002
  8. PIRACETAM [Suspect]
     Active Substance: PIRACETAM
     Indication: PRODUCT USED FOR UNKNOWN INDICATION
     Route: 065
     Dates: start: 2002, end: 2016
  9. OXCARBAZEPINE. [Suspect]
     Active Substance: OXCARBAZEPINE
     Indication: GENERALISED TONIC-CLONIC SEIZURE
     Route: 065
     Dates: start: 2002
  10. CITICOLINE [Suspect]
     Active Substance: CITICOLINE
     Indication: PRODUCT USED FOR UNKNOWN INDICATION
     Route: 065
     Dates: start: 2002, end: 2016

REACTIONS (11)
  - Speech disorder [Recovering/Resolving]
  - Hypokinesia [Recovering/Resolving]
  - Tremor [Recovering/Resolving]
  - Agitation [Recovering/Resolving]
  - Dysphagia [Recovering/Resolving]
  - Urinary incontinence [Recovering/Resolving]
  - Neuroleptic malignant syndrome [Recovering/Resolving]
  - Pyrexia [Recovering/Resolving]
  - Mental status changes [Recovering/Resolving]
  - Muscle rigidity [Recovering/Resolving]
  - Drug interaction [Unknown]

NARRATIVE: CASE EVENT DATE: 20161107
